FAERS Safety Report 14950764 (Version 1)
Quarter: 2018Q2

REPORT INFORMATION
  Report Type: Report from Study
  Country: IT (occurrence: IT)
  Receive Date: 20180530
  Receipt Date: 20180530
  Transmission Date: 20180711
  Serious: Yes (Other)
  Sender: FDA-Public Use
  Company Number: IT-ACCORD-039127

PATIENT
  Age: 56 Year
  Sex: Male

DRUGS (4)
  1. ZALTRAP [Suspect]
     Active Substance: ZIV-AFLIBERCEPT
     Indication: COLON CANCER RECURRENT
     Route: 042
     Dates: start: 20151124, end: 20151124
  2. IRINOTECAN [Suspect]
     Active Substance: IRINOTECAN
     Indication: COLON CANCER RECURRENT
     Route: 042
     Dates: start: 20151124, end: 20151124
  3. FOLINIC ACID [Suspect]
     Active Substance: LEUCOVORIN
     Indication: COLON CANCER RECURRENT
     Route: 042
     Dates: start: 20151124, end: 20151124
  4. FLUOROURACIL. [Suspect]
     Active Substance: FLUOROURACIL
     Indication: COLON CANCER RECURRENT
     Route: 041
     Dates: start: 20151124, end: 20151124

REACTIONS (2)
  - Diarrhoea [Recovered/Resolved]
  - Rectal haemorrhage [Recovered/Resolved]

NARRATIVE: CASE EVENT DATE: 20151201
